FAERS Safety Report 23916573 (Version 1)
Quarter: 2024Q2

REPORT INFORMATION
  Report Type: Spontaneous
  Country: US (occurrence: None)
  Receive Date: 20240528
  Receipt Date: 20240528
  Transmission Date: 20240716
  Serious: Yes (Hospitalization)
  Sender: FDA-Public Use
  Company Number: None

PATIENT
  Age: 69 Year
  Sex: Female

DRUGS (10)
  1. TACROLIMUS [Suspect]
     Active Substance: TACROLIMUS
     Indication: Organ transplant
     Dosage: 0.5 MG 2 CAPS QAM, 1 CAP QPM ORAL?
     Route: 048
  2. MYCOPHENOLIC ACID [Suspect]
     Active Substance: MYCOPHENOLIC ACID
     Indication: Organ transplant
     Dosage: 1000 MG TWICE A DAY ORAL
     Route: 048
  3. Melatonin 3mg [Concomitant]
  4. sulfameth/trimethoprim 800/160mg [Concomitant]
  5. Calcium 600 + D 400 [Concomitant]
  6. OMEPRAZOLE [Concomitant]
     Active Substance: DONEPEZIL HYDROCHLORIDE\OMEPRAZOLE\OMEPRAZOLE MAGNESIUM
  7. ELIQUIS [Concomitant]
     Active Substance: APIXABAN
  8. Senna 8.6mg [Concomitant]
  9. AMIODARONE [Concomitant]
     Active Substance: AMIODARONE
  10. PREDNISONE [Concomitant]
     Active Substance: PREDNISONE

REACTIONS (1)
  - COVID-19 [None]

NARRATIVE: CASE EVENT DATE: 20240516
